FAERS Safety Report 4539574-9 (Version None)
Quarter: 2004Q4

REPORT INFORMATION
  Report Type: 
  Country: None (occurrence: None)
  Receive Date: 20041228
  Receipt Date: 20041221
  Transmission Date: 20050328
  Serious: Yes (Hospitalization)
  Sender: FDA-Public Use
  Company Number: US-ABBOTT-04P-163-0284182-00

PATIENT
  Sex: Female
  Weight: 79.45 kg

DRUGS (1)
  1. DEPAKOTE [Suspect]
     Indication: BIPOLAR DISORDER
     Route: 048
     Dates: start: 19980201, end: 19980201

REACTIONS (6)
  - COMA [None]
  - CONVULSION [None]
  - DIFFICULTY IN WALKING [None]
  - HYPERAMMONAEMIA [None]
  - METABOLIC DISORDER [None]
  - ORGAN FAILURE [None]
